FAERS Safety Report 16050978 (Version 5)
Quarter: 2019Q2

REPORT INFORMATION
  Report Type: Spontaneous
  Country: US (occurrence: US)
  Receive Date: 20190308
  Receipt Date: 20190619
  Transmission Date: 20190711
  Serious: No
  Sender: FDA-Public Use
  Company Number: US-PFIZER INC-2019095988

PATIENT
  Age: 40 Year
  Sex: Female
  Weight: 67 kg

DRUGS (4)
  1. GABAPENTIN. [Suspect]
     Active Substance: GABAPENTIN
     Indication: FIBROMYALGIA
  2. NEURONTIN [Suspect]
     Active Substance: GABAPENTIN
     Indication: NERVE INJURY
     Dosage: 600 MG, 3X/DAY
     Route: 048
     Dates: start: 2008
  3. NEURONTIN [Suspect]
     Active Substance: GABAPENTIN
     Indication: FIBROMYALGIA
  4. GABAPENTIN. [Suspect]
     Active Substance: GABAPENTIN
     Indication: NERVE INJURY
     Dosage: 600 MG, 3X/DAY
     Route: 048
     Dates: start: 2008

REACTIONS (12)
  - Toothache [Not Recovered/Not Resolved]
  - Tooth loss [Unknown]
  - Agitation [Unknown]
  - Product use in unapproved indication [Unknown]
  - Oral pain [Not Recovered/Not Resolved]
  - Bone marrow disorder [Unknown]
  - Vision blurred [Not Recovered/Not Resolved]
  - Teeth brittle [Not Recovered/Not Resolved]
  - Intentional product misuse [Unknown]
  - Dental caries [Unknown]
  - Hypertension [Unknown]
  - Tooth injury [Not Recovered/Not Resolved]

NARRATIVE: CASE EVENT DATE: 2008
